FAERS Safety Report 22880659 (Version 2)
Quarter: 2023Q4

REPORT INFORMATION
  Report Type: Spontaneous
  Country: US (occurrence: US)
  Receive Date: 20230829
  Receipt Date: 20231025
  Transmission Date: 20240109
  Serious: Yes (Other)
  Sender: FDA-Public Use
  Company Number: US-ALXN-A202311068

PATIENT

DRUGS (1)
  1. ULTOMIRIS [Suspect]
     Active Substance: RAVULIZUMAB-CWVZ
     Indication: Paroxysmal nocturnal haemoglobinuria
     Dosage: UNK, UNK, EVERY 8 WEEKS
     Route: 065

REACTIONS (4)
  - Intravascular haemolysis [Unknown]
  - Haemoglobin decreased [Recovering/Resolving]
  - Low density lipoprotein abnormal [Recovering/Resolving]
  - Off label use [Unknown]
